FAERS Safety Report 9733051 (Version 3)
Quarter: 2015Q3

REPORT INFORMATION
  Report Type: Spontaneous
  Country: US (occurrence: US)
  Receive Date: 20131204
  Receipt Date: 20150804
  Transmission Date: 20151125
  Serious: No
  Sender: FDA-Public Use
  Company Number: US-GILEAD-2009-0022408

PATIENT
  Age: 82 Year
  Sex: Male
  Weight: 69.85 kg

DRUGS (24)
  1. NITROQUICK [Concomitant]
     Active Substance: NITROGLYCERIN
  2. STARLIX [Concomitant]
     Active Substance: NATEGLINIDE
  3. LETAIRIS [Suspect]
     Active Substance: AMBRISENTAN
     Indication: PULMONARY ARTERIAL HYPERTENSION
     Route: 048
     Dates: start: 20090312, end: 20090519
  4. FUROSEMIDE. [Concomitant]
     Active Substance: FUROSEMIDE
  5. COREG [Concomitant]
     Active Substance: CARVEDILOL
  6. TRIAMCINOLON CREAM [Concomitant]
  7. OSCAL 500 [Concomitant]
  8. SPIRONOLACTONE. [Concomitant]
     Active Substance: SPIRONOLACTONE
  9. ARICEPT [Concomitant]
     Active Substance: DONEPEZIL HYDROCHLORIDE
  10. CRESTOR [Concomitant]
     Active Substance: ROSUVASTATIN CALCIUM
  11. LOVAZA [Concomitant]
     Active Substance: OMEGA-3-ACID ETHYL ESTERS
  12. GLYBURIDE. [Concomitant]
     Active Substance: GLYBURIDE
  13. LYRICA [Concomitant]
     Active Substance: PREGABALIN
  14. JANUMET [Concomitant]
     Active Substance: METFORMIN HYDROCHLORIDE\SITAGLIPTIN PHOSPHATE
  15. PLAVIX [Concomitant]
     Active Substance: CLOPIDOGREL BISULFATE
  16. ASPIRIN. [Concomitant]
     Active Substance: ASPIRIN
  17. DIOVAN [Concomitant]
     Active Substance: VALSARTAN
  18. IMDUR [Concomitant]
     Active Substance: ISOSORBIDE MONONITRATE
  19. NAMENDA [Concomitant]
     Active Substance: MEMANTINE HYDROCHLORIDE
  20. WARFARIN [Concomitant]
     Active Substance: WARFARIN
  21. TEKTURNA [Concomitant]
     Active Substance: ALISKIREN HEMIFUMARATE
  22. METFORMIN [Concomitant]
     Active Substance: METFORMIN HYDROCHLORIDE
  23. EXFORGE 5 [Concomitant]
  24. SINGULAIR [Concomitant]
     Active Substance: MONTELUKAST SODIUM

REACTIONS (2)
  - Presyncope [Unknown]
  - Dizziness [Unknown]
